FAERS Safety Report 6414987-9 (Version None)
Quarter: 2009Q4

REPORT INFORMATION
  Report Type: 
  Country: None (occurrence: None)
  Receive Date: 20091026
  Receipt Date: 20090710
  Transmission Date: 20100525
  Serious: No
  Sender: FDA-Public Use
  Company Number: US-ABBOTT-09P-163-0585400-00

PATIENT
  Sex: Female

DRUGS (3)
  1. LUPRON DEPOT [Suspect]
     Indication: ENDOMETRIOSIS
     Dates: start: 20090619
  2. LUPRON DEPOT [Suspect]
     Indication: UTERINE LEIOMYOMA
  3. LUPRON DEPOT [Suspect]
     Indication: REPRODUCTIVE TRACT DISORDER

REACTIONS (7)
  - AMNESIA [None]
  - ARTHRALGIA [None]
  - CONFUSIONAL STATE [None]
  - DEPRESSION [None]
  - HOT FLUSH [None]
  - MIGRAINE [None]
  - PAIN [None]
